FAERS Safety Report 17061928 (Version 2)
Quarter: 2019Q4

REPORT INFORMATION
  Report Type: Report from Study
  Country: None (occurrence: CA)
  Receive Date: 20191121
  Receipt Date: 20191125
  Transmission Date: 20200122
  Serious: Yes (Other)
  Sender: FDA-Public Use
  Company Number: CA-ABBVIE-19K-028-3007639-00

PATIENT
  Age: 35 Year
  Sex: Female

DRUGS (1)
  1. HUMIRA [Suspect]
     Active Substance: ADALIMUMAB
     Indication: CROHN^S DISEASE
     Route: 058
     Dates: start: 20171028

REACTIONS (7)
  - Abortion spontaneous [Unknown]
  - Injection site pain [Unknown]
  - Abdominal pain [Recovered/Resolved]
  - Impaired quality of life [Unknown]
  - Maternal exposure during pregnancy [Unknown]
  - General physical health deterioration [Not Recovered/Not Resolved]
  - Impaired work ability [Unknown]

NARRATIVE: CASE EVENT DATE: 201908
